FAERS Safety Report 22988078 (Version 2)
Quarter: 2023Q4

REPORT INFORMATION
  Report Type: Spontaneous
  Country: US (occurrence: US)
  Receive Date: 20230926
  Receipt Date: 20231002
  Transmission Date: 20240109
  Serious: No
  Sender: FDA-Public Use
  Company Number: US-Calliditas-2023CAL01243

PATIENT
  Age: 65 Year
  Sex: Female

DRUGS (2)
  1. TARPEYO [Suspect]
     Active Substance: BUDESONIDE
     Indication: IgA nephropathy
     Dosage: 16 MG (4 MG CAPSULES) ONCE DAILY
     Route: 048
     Dates: start: 20230428
  2. MYCOPHENOLIC ACID [Concomitant]
     Active Substance: MYCOPHENOLIC ACID

REACTIONS (2)
  - COVID-19 [Recovered/Resolved]
  - Respiratory tract infection [Recovered/Resolved]

NARRATIVE: CASE EVENT DATE: 20230101
